FAERS Safety Report 23770020 (Version 4)
Quarter: 2024Q2

REPORT INFORMATION
  Report Type: Spontaneous
  Country: JP (occurrence: JP)
  Receive Date: 20240422
  Receipt Date: 20240529
  Transmission Date: 20240716
  Serious: Yes (Hospitalization)
  Sender: FDA-Public Use
  Company Number: JP-WT-2024-JP-023074

PATIENT
  Age: 70 Year
  Sex: Male

DRUGS (4)
  1. DUTASTERIDE [Suspect]
     Active Substance: DUTASTERIDE
     Indication: Benign prostatic hyperplasia
     Dosage: 0.5 MG, 1D
     Route: 065
     Dates: end: 20240328
  2. DAYVIGO [Concomitant]
     Active Substance: LEMBOREXANT
  3. LANSOPRAZOLE [Concomitant]
     Active Substance: LANSOPRAZOLE
  4. SILODOSIN [Concomitant]
     Active Substance: SILODOSIN
     Dates: end: 20240410

REACTIONS (1)
  - White blood cell count decreased [Unknown]

NARRATIVE: CASE EVENT DATE: 20240216
